FAERS Safety Report 15228731 (Version 1)
Quarter: 2018Q3

REPORT INFORMATION
  Report Type: Spontaneous
  Country: PT (occurrence: PT)
  Receive Date: 20180801
  Receipt Date: 20180801
  Transmission Date: 20181010
  Serious: Yes (Other)
  Sender: FDA-Public Use
  Company Number: PHHY2018PT061534

PATIENT
  Age: 5 Month
  Sex: Female
  Weight: 6.2 kg

DRUGS (2)
  1. VIGANTOL [Concomitant]
     Active Substance: CHOLECALCIFEROL
     Indication: PRODUCT USED FOR UNKNOWN INDICATION
     Route: 048
  2. APRACLONIDINE [Suspect]
     Active Substance: APRACLONIDINE HYDROCHLORIDE
     Indication: OPHTHALMOLOGICAL EXAMINATION
     Dosage: (DILUTED DROP IN THE OPHTHALMOLOGY DEPARTMENT, BEFORE OPHTHALMOLOGIC OBSERVATION)
     Route: 047

REACTIONS (3)
  - Asthenia [Recovered/Resolved]
  - Crying [Recovered/Resolved]
  - Apathy [Recovered/Resolved]

NARRATIVE: CASE EVENT DATE: 20180517
